FAERS Safety Report 6283276-8 (Version None)
Quarter: 2009Q3

REPORT INFORMATION
  Report Type: 
  Country: None (occurrence: None)
  Receive Date: 20090724
  Receipt Date: 20090202
  Transmission Date: 20100115
  Serious: No
  Sender: FDA-Public Use
  Company Number: US-AMGEN-KDL331634

PATIENT
  Sex: Male

DRUGS (3)
  1. PROCRIT [Suspect]
     Indication: ANAEMIA
     Route: 058
     Dates: start: 20081201
  2. ENALAPRIL MALEATE [Concomitant]
     Dates: start: 20081201
  3. VERAPAMIL [Concomitant]
     Dates: start: 20090131

REACTIONS (1)
  - BLOOD PRESSURE INCREASED [None]
